FAERS Safety Report 24608566 (Version 1)
Quarter: 2024Q4

REPORT INFORMATION
  Report Type: Report from Study
  Country: US (occurrence: US)
  Receive Date: 20241112
  Receipt Date: 20241112
  Transmission Date: 20250115
  Serious: Yes (Other)
  Sender: ABBVIE
  Company Number: US-ABBVIE-5992684

PATIENT
  Sex: Female

DRUGS (1)
  1. HUMIRA [Suspect]
     Active Substance: ADALIMUMAB
     Indication: Product used for unknown indication
     Route: 058
     Dates: start: 20190410

REACTIONS (6)
  - Venous occlusion [Recovered/Resolved]
  - Symptom recurrence [Not Recovered/Not Resolved]
  - Therapeutic response shortened [Unknown]
  - Muscle spasms [Unknown]
  - Joint warmth [Unknown]
  - Pain [Unknown]
